FAERS Safety Report 5557388-8 (Version None)
Quarter: 2007Q4

REPORT INFORMATION
  Report Type: 
  Country: None (occurrence: None)
  Receive Date: 20071211
  Receipt Date: 20071126
  Transmission Date: 20080405
  Serious: Yes (Hospitalization, Other)
  Sender: FDA-Public Use
  Company Number: 2007S1012550

PATIENT
  Age: 54 Year
  Sex: Female

DRUGS (5)
  1. DILTIAZEM [Suspect]
     Indication: HYPERTENSION
  2. ATENOLOL [Suspect]
     Indication: HYPERTENSION
  3. IRBESARTAN [Concomitant]
  4. METFORMIN HCL [Concomitant]
  5. INSULIN [Concomitant]

REACTIONS (6)
  - ASTHENIA [None]
  - BLOOD PRESSURE DECREASED [None]
  - HYPERKALAEMIA [None]
  - NODAL ARRHYTHMIA [None]
  - RENAL FAILURE [None]
  - SINUS ARREST [None]
